FAERS Safety Report 7067389-9 (Version None)
Quarter: 2010Q4

REPORT INFORMATION
  Report Type: 
  Country: None (occurrence: None)
  Receive Date: 20101028
  Receipt Date: 20101025
  Transmission Date: 20110411
  Serious: Yes (Death, Hospitalization, Other)
  Sender: FDA-Public Use
  Company Number: US-CELGENEUS-163-CCAZA-10102456

PATIENT

DRUGS (1)
  1. AZACITIDINE [Suspect]
     Route: 048

REACTIONS (4)
  - DISEASE PROGRESSION [None]
  - FEBRILE NEUTROPENIA [None]
  - FUNGAL INFECTION [None]
  - GRAFT VERSUS HOST DISEASE [None]
